FAERS Safety Report 6256825-3 (Version None)
Quarter: 2009Q3

REPORT INFORMATION
  Report Type: 
  Country: None (occurrence: None)
  Receive Date: 20090706
  Receipt Date: 20090625
  Transmission Date: 20100115
  Serious: Yes (Other)
  Sender: FDA-Public Use
  Company Number: PHEH2009US06663

PATIENT
  Sex: Female

DRUGS (2)
  1. DIOVAN HCT [Suspect]
     Dosage: 160/12.5 MG, TWO PILLS DAILY
     Route: 065
  2. DIOVAN HCT [Suspect]
     Dosage: 160/12.5 MG, ONE PILL DAILY
     Route: 065

REACTIONS (4)
  - HYPERTENSION [None]
  - HYPOTENSION [None]
  - STRESS [None]
  - WEIGHT DECREASED [None]
